FAERS Safety Report 7074872-9 (Version None)
Quarter: 2010Q4

REPORT INFORMATION
  Report Type: 
  Country: None (occurrence: None)
  Receive Date: 20101029
  Receipt Date: 20101019
  Transmission Date: 20110411
  Serious: Yes (Disabling, Other)
  Sender: FDA-Public Use
  Company Number: PHEH2009US11010

PATIENT
  Sex: Female

DRUGS (3)
  1. AREDIA [Suspect]
  2. FOSAMAX [Suspect]
  3. ACTONEL [Suspect]

REACTIONS (17)
  - ANHEDONIA [None]
  - ANXIETY [None]
  - ATELECTASIS [None]
  - BONE DENSITY DECREASED [None]
  - BONE DISORDER [None]
  - CHEST PAIN [None]
  - CHRONIC OBSTRUCTIVE PULMONARY DISEASE [None]
  - DYSPNOEA [None]
  - GASTROINTESTINAL DISORDER [None]
  - IMPAIRED HEALING [None]
  - INJURY [None]
  - ORAL DISORDER [None]
  - OSTEONECROSIS OF JAW [None]
  - PAIN [None]
  - PAIN IN JAW [None]
  - SPINAL COMPRESSION FRACTURE [None]
  - TOOTH EXTRACTION [None]
